FAERS Safety Report 15343417 (Version 1)
Quarter: 2018Q3

REPORT INFORMATION
  Report Type: Spontaneous
  Country: JP (occurrence: JP)
  Receive Date: 20180903
  Receipt Date: 20180903
  Transmission Date: 20181010
  Serious: Yes (Other)
  Sender: FDA-Public Use
  Company Number: JP-TEVA-2018-JP-950462

PATIENT
  Age: 63 Year
  Sex: Male

DRUGS (4)
  1. HEPARIN [Suspect]
     Active Substance: HEPARIN SODIUM
     Indication: ANTICOAGULANT THERAPY
     Dosage: COATED ON THE ARTERIAL INFUSION CATHETER, THE CATHETER WAS PLACED IN THE RIGHT HEPATIC ARTERY
     Route: 013
  2. HEPARIN [Suspect]
     Active Substance: HEPARIN SODIUM
     Route: 065
  3. CISPLATIN. [Concomitant]
     Active Substance: CISPLATIN
     Indication: HEPATOCELLULAR CARCINOMA
     Dosage: ADMINISTERED VIA ARTERIAL INFUSION CATHETER, PLACED IN THE RIGHT HEPATIC ARTERY
     Route: 013
  4. 5?FLUOROURACIL [Concomitant]
     Active Substance: FLUOROURACIL
     Indication: HEPATOCELLULAR CARCINOMA
     Dosage: ADMINISTERED VIA ARTERIAL INFUSION CATHETER, PLACED IN THE RIGHT HEPATIC ARTERY
     Route: 013

REACTIONS (5)
  - Haematoma [Unknown]
  - Heparin-induced thrombocytopenia [Recovering/Resolving]
  - Ischaemic stroke [Recovering/Resolving]
  - Device related thrombosis [Recovered/Resolved]
  - Subarachnoid haemorrhage [Unknown]
